FAERS Safety Report 13630580 (Version 1)
Quarter: 2017Q2

REPORT INFORMATION
  Report Type: Spontaneous
  Country: US (occurrence: US)
  Receive Date: 20170531
  Receipt Date: 20170531
  Transmission Date: 20170830
  Serious: No
  Sender: FDA-Public Use
  Company Number: US-ASTELLAS-1312904

PATIENT
  Sex: Female

DRUGS (5)
  1. TARCEVA [Suspect]
     Active Substance: ERLOTINIB HYDROCHLORIDE
     Indication: LUNG NEOPLASM MALIGNANT
     Route: 048
     Dates: start: 20101009
  2. FISH OIL [Concomitant]
     Active Substance: FISH OIL
  3. CLARITIN [Concomitant]
     Active Substance: LORATADINE
  4. ASPIRIN. [Concomitant]
     Active Substance: ASPIRIN
  5. TARCEVA [Suspect]
     Active Substance: ERLOTINIB HYDROCHLORIDE
     Route: 048
     Dates: start: 20101021

REACTIONS (5)
  - Rhinorrhoea [Unknown]
  - Lacrimation increased [Unknown]
  - Acne [Unknown]
  - Drug resistance [Unknown]
  - Diarrhoea [Unknown]
